FAERS Safety Report 25929535 (Version 1)
Quarter: 2025Q4

REPORT INFORMATION
  Report Type: Spontaneous
  Country: US (occurrence: None)
  Receive Date: 20251015
  Receipt Date: 20251015
  Transmission Date: 20260118
  Serious: Yes (Hospitalization)
  Sender: FDA-CTU
  Company Number: None

PATIENT
  Age: 92 Year
  Sex: Female
  Weight: 66.22 kg

DRUGS (17)
  1. FORTEO [Suspect]
     Active Substance: TERIPARATIDE
     Indication: Osteoporosis
     Dosage: FREQUENCY : DAILY;?
     Route: 058
     Dates: start: 20250108
  2. DONEPEZIL [Concomitant]
     Active Substance: DONEPEZIL
  3. BETAMETHASONE DIPROPIONAT [Concomitant]
  4. VITAMIN D3 [Concomitant]
     Active Substance: CHOLECALCIFEROL
  5. HYDROXYZINE HYDROCHLORIDE [Concomitant]
     Active Substance: HYDROXYZINE HYDROCHLORIDE
  6. ACETAMINOPHEN [Concomitant]
     Active Substance: ACETAMINOPHEN
  7. METOPROLOL SUCCINATE [Concomitant]
     Active Substance: METOPROLOL SUCCINATE
  8. TRIAMCINOLONE [Concomitant]
     Active Substance: TRIAMCINOLONE
  9. OMEPRAZOLE [Concomitant]
     Active Substance: OMEPRAZOLE
  10. MELATONIN [Concomitant]
     Active Substance: MELATONIN
  11. ROPINIROLE [Concomitant]
     Active Substance: ROPINIROLE
  12. ASPIRIN [Concomitant]
     Active Substance: ASPIRIN
  13. FUROSEMIDE [Concomitant]
     Active Substance: FUROSEMIDE
  14. MAGNESIUM [Concomitant]
     Active Substance: MAGNESIUM
  15. MEMANTINE [Concomitant]
     Active Substance: MEMANTINE
  16. MIRALAX 3350 POWDER PACKETS [Concomitant]
  17. ELIQUIS [Suspect]
     Active Substance: APIXABAN

REACTIONS (2)
  - Gastrointestinal haemorrhage [None]
  - Therapy interrupted [None]

NARRATIVE: CASE EVENT DATE: 20251008
